FAERS Safety Report 5319468-1 (Version None)
Quarter: 2007Q2

REPORT INFORMATION
  Report Type: 
  Country: None (occurrence: None)
  Receive Date: 20070508
  Receipt Date: 20070502
  Transmission Date: 20071010
  Serious: Yes (Hospitalization)
  Sender: FDA-Public Use
  Company Number: DK-ROXANE LABORATORIES, INC-2007-BP-05963RO

PATIENT
  Age: 64 Year
  Sex: Female

DRUGS (3)
  1. LITHIUM CARBONATE [Suspect]
     Indication: BIPOLAR DISORDER
     Route: 048
  2. SERTRALINE [Suspect]
  3. HALOPERIDOL [Suspect]

REACTIONS (6)
  - BLOOD POTASSIUM DECREASED [None]
  - BUNDLE BRANCH BLOCK RIGHT [None]
  - CEREBRAL ATROPHY [None]
  - CEREBROVASCULAR ACCIDENT [None]
  - ELECTROCARDIOGRAM T WAVE INVERSION [None]
  - THERAPEUTIC AGENT TOXICITY [None]
